FAERS Safety Report 17688224 (Version 1)
Quarter: 2020Q2

REPORT INFORMATION
  Report Type: Spontaneous
  Country: US (occurrence: US)
  Receive Date: 20200421
  Receipt Date: 20200421
  Transmission Date: 20200714
  Serious: No
  Sender: FDA-Public Use
  Company Number: US-HORIZON-RAV-0126-2020

PATIENT
  Age: 25 Year
  Sex: Male

DRUGS (12)
  1. STIVARGA [Concomitant]
     Active Substance: REGORAFENIB
  2. VITAMIN D3 [Concomitant]
     Active Substance: CHOLECALCIFEROL
  3. PHENDIMETRAZINE. [Concomitant]
     Active Substance: PHENDIMETRAZINE TARTRATE
  4. MEGESTROL ACETATE. [Concomitant]
     Active Substance: MEGESTROL ACETATE
  5. CHOLESTHYRAMINE [Concomitant]
  6. PILOCARPINE. [Concomitant]
     Active Substance: PILOCARPINE
  7. SODIUM BICARBONATE. [Concomitant]
     Active Substance: SODIUM BICARBONATE
  8. LEVOTHYROXINE. [Concomitant]
     Active Substance: LEVOTHYROXINE
  9. ENOXAPARIN [Concomitant]
     Active Substance: ENOXAPARIN
  10. RAVICTI [Suspect]
     Active Substance: GLYCEROL PHENYLBUTYRATE
     Indication: UREA CYCLE DISORDER
     Dosage: 6ML BY MOUTH THREE TIMES DAILY
     Route: 048
     Dates: start: 201910
  11. MAGNESIUM [Concomitant]
     Active Substance: MAGNESIUM
  12. BUMETANIDE. [Concomitant]
     Active Substance: BUMETANIDE

REACTIONS (2)
  - Intentional product use issue [Unknown]
  - Diarrhoea [Unknown]
